FAERS Safety Report 4963324-5 (Version None)
Quarter: 2006Q2

REPORT INFORMATION
  Report Type: 
  Country: None (occurrence: None)
  Receive Date: 20060404
  Receipt Date: 20060404
  Transmission Date: 20061013
  Serious: Yes (Other)
  Sender: FDA-Public Use
  Company Number: None

PATIENT
  Age: 57 Year
  Sex: Male
  Weight: 79.5 kg

DRUGS (1)
  1. AVASTIN [Suspect]
     Indication: NEOPLASM MALIGNANT
     Dosage: 1300 MG
     Dates: start: 20051017, end: 20051017

REACTIONS (3)
  - NEUTROPENIA [None]
  - PLEURAL EFFUSION [None]
  - WHITE BLOOD CELL COUNT DECREASED [None]
